FAERS Safety Report 5644871-X (Version None)
Quarter: 2008Q1

REPORT INFORMATION
  Report Type: 
  Country: None (occurrence: None)
  Receive Date: 20080229
  Receipt Date: 20070927
  Transmission Date: 20080703
  Serious: No
  Sender: FDA-Public Use
  Company Number: A0684744A

PATIENT
  Age: 82 Year
  Sex: Male

DRUGS (2)
  1. VALTREX [Suspect]
     Route: 048
     Dates: start: 20070925, end: 20070927
  2. ADVAIR DISKUS 100/50 [Concomitant]

REACTIONS (1)
  - VOMITING [None]
